FAERS Safety Report 5274965-2 (Version None)
Quarter: 2007Q1

REPORT INFORMATION
  Report Type: 
  Country: None (occurrence: None)
  Receive Date: 20061207
  Receipt Date: 20051107
  Transmission Date: 20070707
  Serious: Yes (Other)
  Sender: FDA-Public Use
  Company Number: 2005UW16874

PATIENT
  Sex: Female

DRUGS (3)
  1. TOPROL-XL [Suspect]
     Dosage: TOOK 2 TABS 08:00, 1 TAB AT 20:30
  2. LIPITOR [Concomitant]
  3. DYNACIRC [Concomitant]

REACTIONS (2)
  - ACCIDENTAL OVERDOSE [None]
  - BLOOD PRESSURE INCREASED [None]
